FAERS Safety Report 9283314 (Version 1)
Quarter: 2013Q2

REPORT INFORMATION
  Report Type: Spontaneous
  Country: US (occurrence: US)
  Receive Date: 20130510
  Receipt Date: 20130510
  Transmission Date: 20140414
  Serious: No
  Sender: FDA-Public Use
  Company Number: US-GLAXOSMITHKLINE-A0996722A

PATIENT
  Age: 68 Year
  Sex: Female

DRUGS (5)
  1. TYKERB [Suspect]
     Indication: PRODUCT USED FOR UNKNOWN INDICATION
     Dosage: 1000MG PER DAY
     Route: 048
     Dates: start: 20111001
  2. HERCEPTIN [Suspect]
     Indication: PRODUCT USED FOR UNKNOWN INDICATION
     Route: 065
  3. PROCRIT [Concomitant]
     Indication: RED BLOOD CELL COUNT DECREASED
  4. IMODIUM [Concomitant]
  5. WATER PILL [Concomitant]

REACTIONS (8)
  - Diabetic neuropathy [Unknown]
  - Joint swelling [Unknown]
  - Red blood cell count decreased [Unknown]
  - Skin discolouration [Unknown]
  - Nausea [Unknown]
  - Diarrhoea [Unknown]
  - Fatigue [Unknown]
  - Dry skin [Unknown]
